FAERS Safety Report 5879803-2 (Version None)
Quarter: 2008Q3

REPORT INFORMATION
  Report Type: 
  Country: None (occurrence: None)
  Receive Date: 20080912
  Receipt Date: 20080905
  Transmission Date: 20090109
  Serious: Yes (Hospitalization)
  Sender: FDA-Public Use
  Company Number: PL-ABBOTT-08P-129-0472045-00

PATIENT
  Sex: Male

DRUGS (2)
  1. HUMIRA [Suspect]
     Indication: CROHN'S DISEASE
     Dosage: 80MG X1, THEN 2 WKS LATER 40 MG
     Route: 058
     Dates: start: 20080723
  2. HUMIRA [Suspect]
     Route: 058
     Dates: start: 20080806

REACTIONS (3)
  - C-REACTIVE PROTEIN INCREASED [None]
  - CROHN'S DISEASE [None]
  - INTESTINAL OBSTRUCTION [None]
